FAERS Safety Report 21390639 (Version 2)
Quarter: 2022Q4

REPORT INFORMATION
  Report Type: Report from Study
  Country: IT (occurrence: IT)
  Receive Date: 20220929
  Receipt Date: 20221202
  Transmission Date: 20230113
  Serious: Yes (Death, Other)
  Sender: FDA-Public Use
  Company Number: IT-NOVARTISPH-NVSC2022IT219839

PATIENT
  Age: 61 Year
  Sex: Female

DRUGS (1)
  1. PIQRAY [Suspect]
     Active Substance: ALPELISIB
     Indication: Oral cavity cancer metastatic
     Dosage: 300 MG, QD (DIE)
     Route: 048
     Dates: start: 20220127, end: 20220617

REACTIONS (5)
  - Cachexia [Fatal]
  - Oesophageal stenosis [Fatal]
  - Malignant neoplasm progression [Unknown]
  - General physical health deterioration [Unknown]
  - Therapy partial responder [Unknown]

NARRATIVE: CASE EVENT DATE: 20220527
